FAERS Safety Report 21562950 (Version 3)
Quarter: 2022Q4

REPORT INFORMATION
  Report Type: Spontaneous
  Country: JP (occurrence: JP)
  Receive Date: 20221107
  Receipt Date: 20221216
  Transmission Date: 20230113
  Serious: Yes (Hospitalization, Other)
  Sender: FDA-Public Use
  Company Number: JP-ADVANZ PHARMA-202210007239

PATIENT

DRUGS (11)
  1. ZONISAMIDE [Suspect]
     Active Substance: ZONISAMIDE
     Indication: Parkinson^s disease
     Dosage: 1 DOSAGE FORM, QD (TRERIEF)
     Route: 048
  2. Carbidopa monohydrate, Levodopa [Concomitant]
     Dosage: 5 DOSAGE FORM (DIVIDED INTO 4 DOSES (6:00, 11:00, 17:00, 21:00))
     Dates: start: 201902
  3. Carbidopa monohydrate, Levodopa [Concomitant]
     Dosage: 6 DOSAGE FORM (DIVIDED INTO 4 DOSES (6:00, 11:00, 17:00, 21:00))
     Dates: start: 20190628
  4. SELEGILINE HYDROCHLORIDE [Concomitant]
     Active Substance: SELEGILINE HYDROCHLORIDE
     Dosage: 3 DOSAGE FORM
     Dates: start: 201902
  5. SELEGILINE HYDROCHLORIDE [Concomitant]
     Active Substance: SELEGILINE HYDROCHLORIDE
     Dosage: 2 DOSAGE FORM
     Dates: start: 201904, end: 20190620
  6. NEUPRO [Concomitant]
     Active Substance: ROTIGOTINE
     Dosage: 4.5 MG (PATCH)
     Dates: start: 201902, end: 201904
  7. ONGENTYS [Concomitant]
     Active Substance: OPICAPONE
     Dosage: 25 MG
     Dates: start: 20190620
  8. AZILECT [Concomitant]
     Active Substance: RASAGILINE MESYLATE
     Dosage: 1 MG
     Dates: start: 20190620
  9. BENSERAZIDE HYDROCHLORIDE\LEVODOPA [Concomitant]
     Active Substance: BENSERAZIDE HYDROCHLORIDE\LEVODOPA
     Dosage: 6 DOSAGE FORM (DIVIDED INTO 4 DOSES (6:00, 11:00, 17:00, 21:00))
  10. BENSERAZIDE HYDROCHLORIDE\LEVODOPA [Concomitant]
     Active Substance: BENSERAZIDE HYDROCHLORIDE\LEVODOPA
     Dosage: 5 DOSAGE FORM  (6:00, 9:00, 12:00, 15:00, 18:00)
  11. BENSERAZIDE HYDROCHLORIDE\LEVODOPA [Concomitant]
     Active Substance: BENSERAZIDE HYDROCHLORIDE\LEVODOPA
     Dosage: 4 DOSAGE FORM  (1 TABLET WHEN WAKING UP, 0.5 TABLET AFTER BREAKFAST, 1 TABLET AFTER LUNCH, 0.5 TABLE

REACTIONS (2)
  - Subarachnoid haemorrhage [Unknown]
  - Dyskinesia [Not Recovered/Not Resolved]
